FAERS Safety Report 12111839 (Version 3)
Quarter: 2016Q2

REPORT INFORMATION
  Report Type: Spontaneous
  Country: US (occurrence: US)
  Receive Date: 20160224
  Receipt Date: 20160627
  Transmission Date: 20160815
  Serious: No
  Sender: FDA-Public Use
  Company Number: US-ASTRAZENECA-2016SE16485

PATIENT
  Age: 72 Year
  Sex: Male

DRUGS (1)
  1. BRILINTA [Suspect]
     Active Substance: TICAGRELOR
     Indication: ACUTE CORONARY SYNDROME
     Route: 048
     Dates: start: 201602, end: 201603

REACTIONS (11)
  - Headache [Unknown]
  - Exercise tolerance decreased [Unknown]
  - Nasopharyngitis [Unknown]
  - Fatigue [Unknown]
  - Dizziness [Unknown]
  - Productive cough [Unknown]
  - Insomnia [Unknown]
  - Drug hypersensitivity [Unknown]
  - Chronic obstructive pulmonary disease [Unknown]
  - Dyspnoea [Unknown]
  - Influenza [Unknown]

NARRATIVE: CASE EVENT DATE: 2016
